FAERS Safety Report 16440036 (Version 1)
Quarter: 2019Q2

REPORT INFORMATION
  Report Type: Spontaneous
  Country: US (occurrence: US)
  Receive Date: 20190617
  Receipt Date: 20190617
  Transmission Date: 20190711
  Serious: Yes (Other)
  Sender: FDA-Public Use
  Company Number: US-ROCHE-2338750

PATIENT
  Age: 68 Year
  Sex: Male
  Weight: 71.73 kg

DRUGS (1)
  1. ESBRIET [Suspect]
     Active Substance: PIRFENIDONE
     Indication: IDIOPATHIC PULMONARY FIBROSIS
     Dosage: TAKES WITH FOOD. MORNING, AFTERNOON AND EVENING ;ONGOING: YES
     Route: 048

REACTIONS (2)
  - Headache [Recovering/Resolving]
  - Lung infection [Recovering/Resolving]

NARRATIVE: CASE EVENT DATE: 201810
